FAERS Safety Report 7437544-4 (Version None)
Quarter: 2011Q2

REPORT INFORMATION
  Report Type: 
  Country: None (occurrence: None)
  Receive Date: 20110420
  Receipt Date: 20110411
  Transmission Date: 20111010
  Serious: Yes (Life-Threatening, Hospitalization, Other)
  Sender: FDA-Public Use
  Company Number: 201110054

PATIENT
  Sex: Female

DRUGS (4)
  1. LIORESAL [Suspect]
     Indication: MUSCLE SPASTICITY
     Dosage: 693.75 MCG, DAILY, INTRATHECAL
     Route: 037
  2. FENTANYL [Concomitant]
  3. HYDROMORPHONE HCL [Concomitant]
  4. BUPIVACAINE HCL [Concomitant]

REACTIONS (5)
  - UNDERDOSE [None]
  - NO THERAPEUTIC RESPONSE [None]
  - MEDICAL DEVICE COMPLICATION [None]
  - INCISION SITE INFECTION [None]
  - INCISION SITE COMPLICATION [None]
